FAERS Safety Report 8426377-8 (Version None)
Quarter: 2012Q2

REPORT INFORMATION
  Report Type: 
  Country: None (occurrence: None)
  Receive Date: 20120611
  Receipt Date: 20120604
  Transmission Date: 20120825
  Serious: No
  Sender: FDA-Public Use
  Company Number: US-PFIZER INC-2012042356

PATIENT
  Sex: Male

DRUGS (3)
  1. GEMFIBROZIL [Suspect]
     Indication: HYPERLIPIDAEMIA
     Dosage: UNK
  2. AVAPRO [Suspect]
     Indication: HYPERTENSION
     Dosage: UNK
  3. LISINOPRIL [Suspect]
     Indication: HYPERTENSION
     Dosage: UNK

REACTIONS (2)
  - FLUSHING [None]
  - DRUG HYPERSENSITIVITY [None]
